FAERS Safety Report 8011278-X (Version None)
Quarter: 2011Q4

REPORT INFORMATION
  Report Type: 
  Country: None (occurrence: None)
  Receive Date: 20111227
  Receipt Date: 20111227
  Transmission Date: 20120403
  Serious: Yes (Hospitalization, Other)
  Sender: FDA-Public Use
  Company Number: None

PATIENT
  Age: 13 Year
  Sex: Female
  Weight: 43.544 kg

DRUGS (1)
  1. SINGULAIR [Suspect]
     Dates: start: 20030901, end: 20090220

REACTIONS (7)
  - AGGRESSION [None]
  - HYPERSOMNIA [None]
  - ANXIETY [None]
  - OVERDOSE [None]
  - INTENTIONAL SELF-INJURY [None]
  - DEPRESSION [None]
  - SUICIDAL IDEATION [None]
